FAERS Safety Report 26077879 (Version 1)
Quarter: 2025Q4

REPORT INFORMATION
  Report Type: Spontaneous
  Country: US (occurrence: US)
  Receive Date: 20251122
  Receipt Date: 20251122
  Transmission Date: 20260118
  Serious: No
  Sender: MDD OPERATIONS
  Company Number: US-MDD US Operations-MDD202509-003608

PATIENT
  Age: 73 Year
  Sex: Female

DRUGS (3)
  1. ONAPGO [Suspect]
     Active Substance: APOMORPHINE HYDROCHLORIDE
     Indication: Parkinson^s disease
     Dosage: 1 MG PER HOUR
     Dates: start: 20250903
  2. ONAPGO [Suspect]
     Active Substance: APOMORPHINE HYDROCHLORIDE
     Indication: On and off phenomenon
     Dosage: AS ORDERED
     Dates: start: 202509
  3. ONAPGO [Suspect]
     Active Substance: APOMORPHINE HYDROCHLORIDE
     Indication: Migraine
     Dosage: 1 CARTRIDGE UNDER THE SKIN FOR 16 HOURS OR LESS EACH DAY. CONTINUOUS DOSE (MAX 6MG/HR OR 98MG/DAY) A
     Dates: start: 20250828

REACTIONS (3)
  - Nausea [Not Recovered/Not Resolved]
  - Headache [Recovering/Resolving]
  - Product use in unapproved indication [Unknown]
